FAERS Safety Report 24837377 (Version 1)
Quarter: 2025Q1

REPORT INFORMATION
  Report Type: Spontaneous
  Country: CN (occurrence: CN)
  Receive Date: 20250113
  Receipt Date: 20250113
  Transmission Date: 20250409
  Serious: Yes (Other)
  Sender: JOHNSON AND JOHNSON
  Company Number: CN-JNJFOC-20250111777

PATIENT
  Age: 50 Year
  Sex: Female
  Weight: 44 kg

DRUGS (1)
  1. DARZALEX [Suspect]
     Active Substance: DARATUMUMAB
     Indication: Plasma cell myeloma
     Route: 041
     Dates: start: 20241225, end: 20241226

REACTIONS (5)
  - Hypersensitivity [Recovering/Resolving]
  - Throat irritation [Recovering/Resolving]
  - Dysphonia [Recovering/Resolving]
  - Rhinorrhoea [Recovering/Resolving]
  - Infusion related reaction [Recovering/Resolving]

NARRATIVE: CASE EVENT DATE: 20241226
